FAERS Safety Report 12121022 (Version 2)
Quarter: 2016Q2

REPORT INFORMATION
  Report Type: Spontaneous
  Country: US (occurrence: US)
  Receive Date: 20160226
  Receipt Date: 20160405
  Transmission Date: 20160815
  Serious: No
  Sender: FDA-Public Use
  Company Number: US-PFIZER INC-2016088602

PATIENT
  Age: 43 Year
  Sex: Female
  Weight: 110 kg

DRUGS (4)
  1. LYRICA [Suspect]
     Active Substance: PREGABALIN
     Indication: FIBROMYALGIA
     Dosage: 375 MG, DAILY (ONE 150MG CAPSULE BY MOUTH TWICE A DAY AND 75MG AT NIGHT)
     Route: 048
     Dates: start: 2014
  2. LYRICA [Suspect]
     Active Substance: PREGABALIN
     Indication: PAIN
  3. LYRICA [Suspect]
     Active Substance: PREGABALIN
     Indication: ARTHRITIS
  4. NORCO [Concomitant]
     Active Substance: ACETAMINOPHEN\HYDROCODONE BITARTRATE
     Dosage: UNK UNK, DAILY

REACTIONS (5)
  - Weight increased [Unknown]
  - Amnesia [Not Recovered/Not Resolved]
  - Ear pain [Unknown]
  - Condition aggravated [Unknown]
  - Lip swelling [Unknown]

NARRATIVE: CASE EVENT DATE: 2016
